FAERS Safety Report 7595424-8 (Version None)
Quarter: 2011Q3

REPORT INFORMATION
  Report Type: 
  Country: None (occurrence: None)
  Receive Date: 20110707
  Receipt Date: 20110627
  Transmission Date: 20111222
  Serious: Yes (Death, Hospitalization)
  Sender: FDA-Public Use
  Company Number: MX-CELGENEUS-107-21880-11063866

PATIENT
  Sex: Female

DRUGS (2)
  1. REVLIMID [Suspect]
     Indication: MULTIPLE MYELOMA
     Dosage: 25 MILLIGRAM
     Route: 048
     Dates: start: 20110610, end: 20110620
  2. ANTIARRHYTHMIC AGENT [Suspect]
     Route: 065
     Dates: start: 20110610, end: 20110620

REACTIONS (5)
  - RASH GENERALISED [None]
  - PULMONARY ALVEOLAR HAEMORRHAGE [None]
  - BONE PAIN [None]
  - RENAL FAILURE ACUTE [None]
  - OROPHARYNGEAL PAIN [None]
